FAERS Safety Report 7355892 (Version 4)
Quarter: 2025Q4

REPORT INFORMATION
  Report Type: Spontaneous
  Country: JP (occurrence: EU)
  Receive Date: 20100415
  Receipt Date: 20251027
  Transmission Date: 20260117
  Serious: Yes (Life-Threatening, Other)
  Sender: ALEXION PHARMACEUTICALS
  Company Number: None

PATIENT
  Age: 35 Year
  Sex: Female

DRUGS (5)
  1. CANDESARTAN CILEXETIL [Suspect]
     Active Substance: CANDESARTAN CILEXETIL
     Indication: Migraine prophylaxis
     Dosage: 16 MILLIGRAM, QD
  2. PRAMIPEXOLE [Suspect]
     Active Substance: PRAMIPEXOLE
     Indication: Migraine prophylaxis
     Dosage: 0.18 MILLIGRAM, THREE TIMES
     Route: 065
  3. AMITRIPTYLINE [Suspect]
     Active Substance: AMITRIPTYLINE
     Indication: Migraine prophylaxis
     Dosage: 25 MILLIGRAM, QD
     Route: 065
  4. ZOLMITRIPTAN [Suspect]
     Active Substance: ZOLMITRIPTAN
     Route: 065
  5. METOCLOPRAMIDE [Suspect]
     Active Substance: METOCLOPRAMIDE
     Route: 065

REACTIONS (5)
  - Oligohydramnios [Unknown]
  - Maternal exposure during pregnancy [Recovered/Resolved]
  - Abortion missed [Recovered/Resolved]
  - Contraindicated product administered [Recovered/Resolved]
  - Off label use [Recovered/Resolved]
